FAERS Safety Report 23306377 (Version 1)
Quarter: 2023Q4

REPORT INFORMATION
  Report Type: Spontaneous
  Country: US (occurrence: US)
  Receive Date: 20231218
  Receipt Date: 20231218
  Transmission Date: 20240109
  Serious: Yes (Other)
  Sender: FDA-Public Use
  Company Number: US-NOVOPROD-1149938

PATIENT
  Age: 57 Year
  Sex: Female

DRUGS (1)
  1. NOVOLOG [Suspect]
     Active Substance: INSULIN ASPART
     Indication: Type 2 diabetes mellitus
     Dosage: 10 UNITS IN MORNING, 12-14 UNITS AT LUNCH,  8 UNITS IF HAD A SNACK FOR SUPPER 16 UNITS
     Route: 058

REACTIONS (5)
  - Polypectomy [Not Recovered/Not Resolved]
  - Renal transplant [Recovered/Resolved]
  - Urinary tract infection [Not Recovered/Not Resolved]
  - Diabetes mellitus inadequate control [Recovered/Resolved]
  - Product quality issue [Recovered/Resolved]

NARRATIVE: CASE EVENT DATE: 20070407
